FAERS Safety Report 12244730 (Version 1)
Quarter: 2016Q2

REPORT INFORMATION
  Report Type: Spontaneous
  Country: US (occurrence: None)
  Receive Date: 20160406
  Receipt Date: 20160406
  Transmission Date: 20160815
  Serious: Yes (Life-Threatening, Disabling, Other)
  Sender: FDA-Public Use
  Company Number: None

PATIENT
  Age: 60 Year
  Sex: Male
  Weight: 69.85 kg

DRUGS (13)
  1. OXYCODONE-ACETAMINOPHEN 5-325 [Suspect]
     Active Substance: ACETAMINOPHEN\OXYCODONE HYDROCHLORIDE
     Indication: PAIN IN EXTREMITY
     Dosage: 5-325 MG 1 PILL 3X^D DAY
     Route: 048
     Dates: start: 20160316, end: 20160318
  2. PROMETHAZINE [Concomitant]
     Active Substance: PROMETHAZINE\PROMETHAZINE HYDROCHLORIDE
  3. GENERIC BACTRIM [Concomitant]
     Active Substance: SULFAMETHOXAZOLE\TRIMETHOPRIM
  4. SOMA [Concomitant]
     Active Substance: CARISOPRODOL
  5. PEPCID [Concomitant]
     Active Substance: FAMOTIDINE
  6. VALIUM [Concomitant]
     Active Substance: DIAZEPAM
  7. ASPIRIN. [Concomitant]
     Active Substance: ASPIRIN
  8. FIBER [Concomitant]
     Active Substance: PSYLLIUM HUSK
  9. POTASSIUM [Concomitant]
     Active Substance: POTASSIUM
  10. OXYCODONE-ACETAMINOPHEN 5-325 [Suspect]
     Active Substance: ACETAMINOPHEN\OXYCODONE HYDROCHLORIDE
     Indication: MUSCULOSKELETAL DISCOMFORT
     Dosage: 5-325 MG 1 PILL 3X^D DAY
     Route: 048
     Dates: start: 20160316, end: 20160318
  11. OXYCODONE-ACETAMINOPHEN 5-325 [Suspect]
     Active Substance: ACETAMINOPHEN\OXYCODONE HYDROCHLORIDE
     Indication: BONE LOSS
     Dosage: 5-325 MG 1 PILL 3X^D DAY
     Route: 048
     Dates: start: 20160316, end: 20160318
  12. ACIPHEX [Concomitant]
     Active Substance: RABEPRAZOLE SODIUM
  13. STOMACH MED FOR ULCERS [Concomitant]

REACTIONS (3)
  - Product label issue [None]
  - Burns first degree [None]
  - Stevens-Johnson syndrome [None]

NARRATIVE: CASE EVENT DATE: 20160317
